FAERS Safety Report 22308123 (Version 1)
Quarter: 2023Q2

REPORT INFORMATION
  Report Type: Spontaneous
  Country: US (occurrence: US)
  Receive Date: 20230511
  Receipt Date: 20230511
  Transmission Date: 20230722
  Serious: No
  Sender: FDA-Public Use
  Company Number: US-JNJFOC-20230456996

PATIENT
  Age: 56 Year
  Sex: Male
  Weight: 90 kg

DRUGS (1)
  1. CARVYKTI [Suspect]
     Active Substance: CILTACABTAGENE AUTOLEUCEL
     Indication: Plasma cell myeloma
     Dosage: COI: CCC.GIT5VV.CF4.8; BAG ID: CCC.GIT5VV.CF4.8.F.01
     Route: 065
     Dates: start: 20230425, end: 20230425

REACTIONS (4)
  - Underdose [Unknown]
  - Product container issue [Unknown]
  - Product leakage [Unknown]
  - Product label issue [Unknown]

NARRATIVE: CASE EVENT DATE: 20230425
